FAERS Safety Report 8269338-4 (Version None)
Quarter: 2012Q2

REPORT INFORMATION
  Report Type: 
  Country: None (occurrence: None)
  Receive Date: 20120409
  Receipt Date: 20120404
  Transmission Date: 20120825
  Serious: No
  Sender: FDA-Public Use
  Company Number: US-BAYER-2012-033967

PATIENT

DRUGS (2)
  1. VICODIN [Concomitant]
  2. ALEVE (CAPLET) [Suspect]
     Indication: DYSMENORRHOEA

REACTIONS (2)
  - MUSCLE SPASMS [None]
  - SOMNOLENCE [None]
